FAERS Safety Report 7129138-5 (Version None)
Quarter: 2010Q4

REPORT INFORMATION
  Report Type: 
  Country: None (occurrence: None)
  Receive Date: 20101130
  Receipt Date: 20101122
  Transmission Date: 20110411
  Serious: Yes (Other)
  Sender: FDA-Public Use
  Company Number: CHPA2010DE17342

PATIENT
  Sex: Female
  Weight: 78.005 kg

DRUGS (3)
  1. SCOPOLAMINE [Suspect]
     Indication: MOTION SICKNESS
     Dosage: 1 DF, UNK
     Route: 062
     Dates: start: 20100522, end: 20100524
  2. ACTIVELLE [Concomitant]
     Indication: HORMONE THERAPY
     Dosage: 0.5 DF, QD
     Route: 065
  3. THYRONAJOD [Concomitant]
     Dosage: 125 MG, QD
     Route: 065

REACTIONS (15)
  - APHAGIA [None]
  - DIPLOPIA [None]
  - DYSPHAGIA [None]
  - FATIGUE [None]
  - FEELING COLD [None]
  - HEADACHE [None]
  - INSOMNIA [None]
  - MIDDLE INSOMNIA [None]
  - MOOD ALTERED [None]
  - NAUSEA [None]
  - NIGHTMARE [None]
  - OCULAR HYPERAEMIA [None]
  - PALLOR [None]
  - PALPITATIONS [None]
  - THROAT IRRITATION [None]
